FAERS Safety Report 5879874-3 (Version None)
Quarter: 2008Q3

REPORT INFORMATION
  Report Type: 
  Country: None (occurrence: None)
  Receive Date: 20080912
  Receipt Date: 20080831
  Transmission Date: 20090109
  Serious: Yes (Hospitalization, Other)
  Sender: FDA-Public Use
  Company Number: IR-ROCHE-583804

PATIENT
  Age: 16 Year
  Sex: Male

DRUGS (1)
  1. PEGASYS [Suspect]
     Dosage: FORM: PRE FILLED SYRINGE.
     Route: 065

REACTIONS (7)
  - ASCITES [None]
  - BLOOD BILIRUBIN INCREASED [None]
  - PROTHROMBIN TIME PROLONGED [None]
  - RENAL TUBULAR NECROSIS [None]
  - SEPSIS [None]
  - SKIN LESION [None]
  - URINARY TRACT INFECTION [None]
